FAERS Safety Report 18095121 (Version 1)
Quarter: 2020Q3

REPORT INFORMATION
  Report Type: Spontaneous
  Country: US (occurrence: US)
  Receive Date: 20200731
  Receipt Date: 20200731
  Transmission Date: 20201103
  Serious: Yes (Death)
  Sender: FDA-Public Use
  Company Number: US-ROCHE-2651384

PATIENT
  Sex: Female

DRUGS (13)
  1. ATENOLOL. [Concomitant]
     Active Substance: ATENOLOL
  2. RESTASIS [Concomitant]
     Active Substance: CYCLOSPORINE
  3. LUCENTIS [Suspect]
     Active Substance: RANIBIZUMAB
     Indication: NEOVASCULAR AGE-RELATED MACULAR DEGENERATION
     Dosage: INJECT TO LEFT EYE PFS 0.5MG 0.05 ML
     Route: 050
  4. CLONIDINE. [Concomitant]
     Active Substance: CLONIDINE
  5. PRAVASTATIN. [Concomitant]
     Active Substance: PRAVASTATIN
  6. AMLODIPINE [Concomitant]
     Active Substance: AMLODIPINE BESYLATE
  7. LEVOTHYROXINE. [Concomitant]
     Active Substance: LEVOTHYROXINE
  8. LISINOPRIL. [Concomitant]
     Active Substance: LISINOPRIL
  9. MINOXIDIL. [Concomitant]
     Active Substance: MINOXIDIL
  10. TORSEMIDE. [Concomitant]
     Active Substance: TORSEMIDE
  11. LUCENTIS [Suspect]
     Active Substance: RANIBIZUMAB
     Indication: CHOROIDAL NEOVASCULARISATION
  12. FLUTICASONE. [Concomitant]
     Active Substance: FLUTICASONE
  13. HYDROCORTISONE. [Concomitant]
     Active Substance: HYDROCORTISONE

REACTIONS (1)
  - Death [Fatal]
